FAERS Safety Report 23995914 (Version 1)
Quarter: 2024Q2

REPORT INFORMATION
  Report Type: Spontaneous
  Country: US (occurrence: US)
  Receive Date: 20240620
  Receipt Date: 20240620
  Transmission Date: 20240716
  Serious: No
  Sender: FDA-Public Use
  Company Number: US-PFIZER INC-202400192997

PATIENT
  Age: 45 Year
  Sex: Female
  Weight: 122.47 kg

DRUGS (2)
  1. SPIRONOLACTONE [Suspect]
     Active Substance: SPIRONOLACTONE
     Indication: Adrenal mass
     Dosage: 50MG TABLET EVERY DAY BY MOUTH
     Route: 048
     Dates: start: 202208
  2. SPIRONOLACTONE [Suspect]
     Active Substance: SPIRONOLACTONE
     Dosage: 100 MG, DAILY, 50MG IN THE MORNING AND 50MG IN THE EVENING BY MOUTH
     Route: 048
     Dates: end: 202403

REACTIONS (10)
  - Hair disorder [Recovering/Resolving]
  - Menstrual disorder [Unknown]
  - Pollakiuria [Not Recovered/Not Resolved]
  - Blood pressure abnormal [Unknown]
  - Pruritus [Unknown]
  - Rash [Unknown]
  - Alopecia [Recovering/Resolving]
  - Alopecia [Recovering/Resolving]
  - Product odour abnormal [Unknown]
  - Off label use [Unknown]

NARRATIVE: CASE EVENT DATE: 20220101
